FAERS Safety Report 5565277-8 (Version None)
Quarter: 2007Q4

REPORT INFORMATION
  Report Type: 
  Country: None (occurrence: None)
  Receive Date: 20071218
  Receipt Date: 20071207
  Transmission Date: 20080405
  Serious: Yes (Other)
  Sender: FDA-Public Use
  Company Number: JP-PFIZER INC-2007093944

PATIENT
  Sex: Female

DRUGS (10)
  1. ZITHROMAX [Suspect]
     Indication: OTITIS MEDIA ACUTE
     Route: 048
     Dates: start: 20071031, end: 20071031
  2. NORVASC [Concomitant]
     Route: 048
  3. POLLAKISU [Concomitant]
     Route: 048
  4. MUCOSTA [Concomitant]
     Route: 048
  5. MYONAL [Concomitant]
     Route: 048
  6. CYANOCOBALAMIN [Concomitant]
     Route: 048
  7. LOXONIN [Concomitant]
     Route: 048
  8. CEFDITOREN PIVOXIL [Concomitant]
     Route: 048
     Dates: start: 20071029, end: 20071030
  9. ONON [Concomitant]
     Route: 048
     Dates: start: 20071030, end: 20071101
  10. NIPOLAZIN [Concomitant]
     Route: 048
     Dates: start: 20071030, end: 20071101

REACTIONS (3)
  - ABDOMINAL DISTENSION [None]
  - OEDEMA [None]
  - OLIGURIA [None]
